FAERS Safety Report 6606565-3 (Version None)
Quarter: 2010Q1

REPORT INFORMATION
  Report Type: 
  Country: None (occurrence: None)
  Receive Date: 20100226
  Receipt Date: 20100216
  Transmission Date: 20100710
  Serious: Yes (Hospitalization)
  Sender: FDA-Public Use
  Company Number: DE-GILEAD-E2B_00000547

PATIENT
  Sex: Male
  Weight: 70 kg

DRUGS (5)
  1. AMBRISENTAN [Suspect]
     Indication: PULMONARY ARTERIAL HYPERTENSION
     Route: 048
     Dates: start: 20090801, end: 20100101
  2. SILDENAFIL CITRATE [Concomitant]
     Indication: PULMONARY ARTERIAL HYPERTENSION
     Route: 048
     Dates: start: 20090201
  3. MARCUMAR [Concomitant]
     Indication: THROMBOSIS PROPHYLAXIS
     Dates: start: 20090801
  4. FUROSEMID [Concomitant]
     Route: 048
  5. OXYGEN [Concomitant]
     Indication: RESPIRATORY FAILURE
     Dates: start: 20080201

REACTIONS (18)
  - ATRIAL FIBRILLATION [None]
  - CHEST DISCOMFORT [None]
  - CHRONIC OBSTRUCTIVE PULMONARY DISEASE [None]
  - DEHYDRATION [None]
  - DIARRHOEA [None]
  - DYSPNOEA EXERTIONAL [None]
  - EMPHYSEMA [None]
  - GENERAL PHYSICAL HEALTH DETERIORATION [None]
  - HILAR LYMPHADENOPATHY [None]
  - HYPOKALAEMIA [None]
  - LUNG INFILTRATION [None]
  - MUSCULAR WEAKNESS [None]
  - OEDEMA PERIPHERAL [None]
  - PARAESTHESIA [None]
  - PNEUMONIA [None]
  - RENAL FAILURE ACUTE [None]
  - TACHYARRHYTHMIA [None]
  - UNRESPONSIVE TO STIMULI [None]
